FAERS Safety Report 6717096-4 (Version None)
Quarter: 2010Q2

REPORT INFORMATION
  Report Type: 
  Country: None (occurrence: None)
  Receive Date: 20100505
  Receipt Date: 20100423
  Transmission Date: 20101027
  Serious: Yes (Hospitalization, Disabling, Other)
  Sender: FDA-Public Use
  Company Number: 2010AP000857

PATIENT
  Age: 91 Year
  Sex: Female

DRUGS (3)
  1. ALENDRONATE SODIUM [Suspect]
     Indication: OSTEOPOROSIS
     Dosage: 70 MG;QW
     Dates: start: 20080527
  2. MORPHINE [Concomitant]
  3. VALSARTAN [Concomitant]

REACTIONS (1)
  - FEMORAL NECK FRACTURE [None]
